FAERS Safety Report 6423052-6 (Version None)
Quarter: 2009Q4

REPORT INFORMATION
  Report Type: 
  Country: None (occurrence: None)
  Receive Date: 20091102
  Receipt Date: 20091020
  Transmission Date: 20100525
  Serious: Yes (Other)
  Sender: FDA-Public Use
  Company Number: PHHY2009ZA45345

PATIENT
  Sex: Female

DRUGS (1)
  1. ACLASTA [Suspect]
     Dosage: 5MG/100 ML
     Route: 042
     Dates: start: 20091016

REACTIONS (2)
  - FEELING ABNORMAL [None]
  - PAIN [None]
